FAERS Safety Report 10947659 (Version 4)
Quarter: 2015Q2

REPORT INFORMATION
  Report Type: Spontaneous
  Country: IT (occurrence: IT)
  Receive Date: 20150323
  Receipt Date: 20150407
  Transmission Date: 20150821
  Serious: Yes (Hospitalization)
  Sender: FDA-Public Use
  Company Number: IT-009507513-1503ITA008551

PATIENT
  Age: 78 Year
  Sex: Female
  Weight: 55 kg

DRUGS (4)
  1. DASABUVIR [Suspect]
     Active Substance: DASABUVIR
     Indication: CHRONIC HEPATITIS C
     Dosage: 500 MG, DAILY
     Route: 048
     Dates: start: 20150114, end: 20150227
  2. REBETOL [Suspect]
     Active Substance: RIBAVIRIN
     Indication: CHRONIC HEPATITIS C
     Dosage: 800 MG, DAILY
     Route: 048
     Dates: start: 20150114, end: 20150227
  3. RITONAVIR. [Suspect]
     Active Substance: RITONAVIR
     Indication: CHRONIC HEPATITIS C
     Dosage: 100 MG, DAILY
     Route: 048
     Dates: start: 20150114, end: 20150227
  4. OMBITASVIR [Suspect]
     Active Substance: OMBITASVIR
     Indication: CHRONIC HEPATITIS C
     Dosage: 25 MG, DAILY
     Route: 048
     Dates: start: 20150114, end: 20150227

REACTIONS (2)
  - Hyperbilirubinaemia [Recovering/Resolving]
  - Depressed level of consciousness [Recovering/Resolving]

NARRATIVE: CASE EVENT DATE: 20150227
